FAERS Safety Report 5784021-2 (Version None)
Quarter: 2008Q2

REPORT INFORMATION
  Report Type: 
  Country: None (occurrence: None)
  Receive Date: 20080605
  Receipt Date: 20080430
  Transmission Date: 20081010
  Serious: No
  Sender: FDA-Public Use
  Company Number: A0718053A

PATIENT

DRUGS (1)
  1. ALLI [Suspect]

REACTIONS (12)
  - ADVERSE EVENT [None]
  - ANOREXIA [None]
  - ARTHRALGIA [None]
  - BACK PAIN [None]
  - DECREASED APPETITE [None]
  - FATIGUE [None]
  - FLATULENCE [None]
  - FOOD CRAVING [None]
  - GASTROINTESTINAL SOUNDS ABNORMAL [None]
  - HUNGER [None]
  - NEURALGIA [None]
  - POLLAKIURIA [None]
